FAERS Safety Report 4480671-4 (Version None)
Quarter: 2004Q4

REPORT INFORMATION
  Report Type: 
  Country: None (occurrence: None)
  Receive Date: 20041021
  Receipt Date: 20041012
  Transmission Date: 20050328
  Serious: Yes (Hospitalization, Other)
  Sender: FDA-Public Use
  Company Number: JP-JNJFOC-20031100027

PATIENT
  Sex: Female

DRUGS (22)
  1. REMICADE [Suspect]
     Route: 041
  2. REMICADE [Suspect]
     Indication: RHEUMATOID ARTHRITIS
     Route: 041
  3. PREDONINE [Concomitant]
     Route: 049
  4. METHOTREXATE [Concomitant]
     Route: 049
  5. METHOTREXATE [Concomitant]
     Route: 049
  6. METHOTREXATE [Concomitant]
     Route: 049
  7. LOXONIN [Concomitant]
     Route: 049
  8. METALCAPTASE [Concomitant]
     Route: 049
  9. FOLIAMIN [Concomitant]
     Route: 049
  10. NEORAL [Concomitant]
     Route: 049
  11. ONE ALPHA [Concomitant]
     Route: 049
  12. GASTER [Concomitant]
     Route: 049
  13. MARZULEN S [Concomitant]
     Route: 049
  14. MARZULEN S [Concomitant]
     Route: 049
  15. PYDOXAL [Concomitant]
     Route: 049
  16. URALYT [Concomitant]
     Route: 049
  17. URALYT [Concomitant]
     Route: 049
  18. URALYT [Concomitant]
     Route: 049
  19. URALYT [Concomitant]
     Route: 049
  20. URALYT [Concomitant]
     Route: 049
  21. URALYT [Concomitant]
     Route: 049
  22. URALYT [Concomitant]
     Route: 049

REACTIONS (10)
  - BLOOD ALKALINE PHOSPHATASE INCREASED [None]
  - CHRONIC SINUSITIS [None]
  - DIFFUSE LARGE B-CELL LYMPHOMA [None]
  - HAEMATOCRIT DECREASED [None]
  - LYMPHADENOPATHY [None]
  - LYMPHOCYTE PERCENTAGE DECREASED [None]
  - MALIGNANT NEOPLASM PROGRESSION [None]
  - METASTASIS [None]
  - NASAL ABSCESS [None]
  - SWELLING FACE [None]
